FAERS Safety Report 5345153-6 (Version None)
Quarter: 2007Q2

REPORT INFORMATION
  Report Type: 
  Country: None (occurrence: None)
  Receive Date: 20070601
  Receipt Date: 20070601
  Transmission Date: 20071010
  Serious: Yes (Other)
  Sender: FDA-Public Use
  Company Number: None

PATIENT
  Age: 87 Year
  Sex: Male
  Weight: 74.8435 kg

DRUGS (1)
  1. BCG LIVE -INTRAVESICAL- 81MG/VIAL THERACYS PASTEUR SANOFI [Suspect]
     Indication: BLADDER CANCER
     Dosage: 81MG 1/WK INTRAVESICAL SINGLE DOSE INSTILLED
     Route: 043
     Dates: start: 20070502, end: 20070502

REACTIONS (5)
  - EPIDIDYMITIS [None]
  - ERYTHEMA [None]
  - PENILE SWELLING [None]
  - SCROTAL ERYTHEMA [None]
  - SCROTAL OEDEMA [None]
